FAERS Safety Report 15425307 (Version 1)
Quarter: 2018Q3

REPORT INFORMATION
  Report Type: Spontaneous
  Country: GB (occurrence: DE)
  Receive Date: 20180925
  Receipt Date: 20180925
  Transmission Date: 20181010
  Serious: Yes (Other)
  Sender: FDA-Public Use
  Company Number: DE-FRESENIUS KABI-FK201809954

PATIENT
  Age: 69 Year
  Sex: Male

DRUGS (2)
  1. CEFUROXIME SODIUM. [Suspect]
     Active Substance: CEFUROXIME SODIUM
     Indication: HEAD INJURY
     Dosage: UNK
     Route: 048
     Dates: start: 20180817, end: 20180820
  2. CEFUROXIME (MANUFACTURER UNKNOWN) [Suspect]
     Active Substance: CEFUROXIME
     Indication: HEAD INJURY
     Dosage: UNK
     Route: 042
     Dates: start: 20180815

REACTIONS (2)
  - Vomiting [Unknown]
  - Melaena [Recovering/Resolving]

NARRATIVE: CASE EVENT DATE: 20180819
